FAERS Safety Report 5203829-5 (Version None)
Quarter: 2007Q1

REPORT INFORMATION
  Report Type: 
  Country: None (occurrence: None)
  Receive Date: 20070105
  Receipt Date: 20061227
  Transmission Date: 20070707
  Serious: Yes (Hospitalization)
  Sender: FDA-Public Use
  Company Number: 151337USA

PATIENT
  Sex: Female

DRUGS (10)
  1. LOVASTATIN [Suspect]
     Dosage: 40 MG (40 MG, 1 IN 1 D), ORAL
     Route: 048
     Dates: start: 20060223
  2. ERYTHROMYCIN [Suspect]
     Dosage: 500 MG, ORAL
     Route: 048
     Dates: start: 20060101
  3. CLINDAMYCIN [Concomitant]
  4. CIPROFLOXACIN [Concomitant]
  5. PROCHLORPERAZINE [Concomitant]
  6. NITROFURANTOIN [Concomitant]
  7. SALBUTAMOL [Concomitant]
  8. LEVOFLOXACIN [Concomitant]
  9. FLUCONAZOLE [Concomitant]
  10. SULFAMETHOXAZOLE [Concomitant]

REACTIONS (15)
  - BACK PAIN [None]
  - CHROMATURIA [None]
  - CYSTITIS [None]
  - FATIGUE [None]
  - HEAT STROKE [None]
  - INFLUENZA LIKE ILLNESS [None]
  - LOSS OF CONSCIOUSNESS [None]
  - MALAISE [None]
  - MEDICATION ERROR [None]
  - NAUSEA [None]
  - RENAL DISORDER [None]
  - SKIN DISORDER [None]
  - TEMPERATURE INTOLERANCE [None]
  - URINE OUTPUT DECREASED [None]
  - VOMITING [None]
